FAERS Safety Report 20038270 (Version 4)
Quarter: 2021Q4

REPORT INFORMATION
  Report Type: Report from Study
  Country: CO (occurrence: CO)
  Receive Date: 20211105
  Receipt Date: 20211225
  Transmission Date: 20220304
  Serious: Yes (Death, Hospitalization, Other)
  Sender: FDA-Public Use
  Company Number: CO-TAKEDA-CO202029185

PATIENT
  Age: 38 Year
  Sex: Female
  Weight: 86 kg

DRUGS (5)
  1. ICATIBANT [Suspect]
     Active Substance: ICATIBANT ACETATE
     Indication: Hereditary angioedema
     Dosage: 30 MILLIGRAM, TID
     Route: 058
     Dates: start: 20181029
  2. ICATIBANT [Suspect]
     Active Substance: ICATIBANT ACETATE
     Indication: Hereditary angioedema
     Dosage: 30 MILLIGRAM, TID
     Route: 058
     Dates: start: 20181029
  3. TAKHZYRO [Suspect]
     Active Substance: LANADELUMAB-FLYO
     Indication: Hereditary angioedema
     Dosage: 150 MILLIGRAM, Q2WEEKS
     Route: 058
  4. DANAZOL [Concomitant]
     Active Substance: DANAZOL
     Dosage: 1 DOSAGE FORM, QD
     Route: 048
  5. DIOVAN [Concomitant]
     Active Substance: VALSARTAN
     Indication: Blood pressure increased
     Dosage: 1 DOSAGE FORM, BID
     Route: 065

REACTIONS (7)
  - Cardio-respiratory arrest [Fatal]
  - Blood pressure increased [Recovered/Resolved]
  - Blood pressure fluctuation [Not Recovered/Not Resolved]
  - Adverse event [Not Recovered/Not Resolved]
  - Hereditary angioedema [Not Recovered/Not Resolved]
  - Product prescribing error [Unknown]
  - Chest pain [Unknown]

NARRATIVE: CASE EVENT DATE: 20210401
